FAERS Safety Report 21710591 (Version 1)
Quarter: 2022Q4

REPORT INFORMATION
  Report Type: Report from Study
  Country: US (occurrence: US)
  Receive Date: 20221212
  Receipt Date: 20221212
  Transmission Date: 20230112
  Serious: No
  Sender: FDA-Public Use
  Company Number: US-ABBVIE-22K-163-4248163-00

PATIENT
  Sex: Female

DRUGS (2)
  1. HUMIRA [Suspect]
     Active Substance: ADALIMUMAB
     Indication: Colitis ulcerative
     Dosage: DAY 1   FREQUENCY ONE IN ONCE
     Route: 058
     Dates: start: 20210808, end: 20210808
  2. HUMIRA [Suspect]
     Active Substance: ADALIMUMAB
     Dosage: DAY 15 FREQUENCY ONE IN ONCE
     Route: 058
     Dates: start: 20210822, end: 20210822

REACTIONS (11)
  - Insomnia [Not Recovered/Not Resolved]
  - Constipation [Unknown]
  - Arthropod bite [Unknown]
  - Depressed mood [Unknown]
  - Skin atrophy [Unknown]
  - Musculoskeletal stiffness [Unknown]
  - Abdominal distension [Unknown]
  - Increased tendency to bruise [Unknown]
  - Arthralgia [Not Recovered/Not Resolved]
  - Bronchitis [Unknown]
  - Anxiety [Unknown]

NARRATIVE: CASE EVENT DATE: 20210101
